FAERS Safety Report 5847177-9 (Version None)
Quarter: 2008Q3

REPORT INFORMATION
  Report Type: 
  Country: None (occurrence: None)
  Receive Date: 20080815
  Receipt Date: 20080807
  Transmission Date: 20090109
  Serious: Yes (Other)
  Sender: FDA-Public Use
  Company Number: PHHY2008DK17234

PATIENT
  Sex: Male

DRUGS (10)
  1. ZOMETA [Suspect]
     Indication: METASTASES TO BONE
     Dosage: 4 MG, QMO
     Dates: start: 20031219
  2. ZOLADEX [Concomitant]
     Indication: PROSTATE CANCER
     Dosage: 10.8 MG EVERY 3 MONTHS
     Route: 058
     Dates: start: 20051214
  3. ESTROFEM [Concomitant]
     Indication: HORMONE THERAPY
     Dosage: 1 MG, QD
     Dates: start: 20051027, end: 20060307
  4. CONTALGIN [Concomitant]
     Indication: PAIN
     Dosage: 10 MG, UNK
     Dates: start: 20080611
  5. FINASTERIDE [Concomitant]
     Indication: BENIGN PROSTATIC HYPERPLASIA
     Dosage: 5 MG, BID
     Dates: start: 20071004
  6. FLUCONAZOLE [Concomitant]
     Indication: ORAL CANDIDIASIS
     Dosage: 50 MG, BID
     Dates: start: 20080429
  7. IBUMETIN [Concomitant]
     Indication: PAIN
     Dosage: 600 MG, TID
     Dates: start: 20080529
  8. MORFIN [Concomitant]
     Indication: PAIN
     Dosage: 10 MG SOS
     Dates: start: 20060216
  9. MOVICOL [Concomitant]
     Indication: CONSTIPATION
     Dosage: 1 DF SOS
     Dates: start: 20070705
  10. PINEX [Concomitant]
     Indication: PAIN
     Dosage: 500 MG SOS
     Dates: start: 20060821

REACTIONS (2)
  - BACTERIAL INFECTION [None]
  - OSTEONECROSIS [None]
